FAERS Safety Report 13887849 (Version 1)
Quarter: 2017Q3

REPORT INFORMATION
  Report Type: Spontaneous
  Country: PL (occurrence: PL)
  Receive Date: 20170821
  Receipt Date: 20170821
  Transmission Date: 20171127
  Serious: Yes (Other)
  Sender: FDA-Public Use
  Company Number: PL-INCYTE CORPORATION-2017IN006942

PATIENT

DRUGS (3)
  1. JAKAVI [Suspect]
     Active Substance: RUXOLITINIB
     Indication: PRODUCT USED FOR UNKNOWN INDICATION
     Dosage: 20 MG, BID
     Route: 065
     Dates: start: 201704
  2. JAKAVI [Suspect]
     Active Substance: RUXOLITINIB
     Dosage: 1X 20 MG ON ONE DAY AND 2 X 20 MG ON THE SECOND DAY
     Route: 065
  3. JAKAVI [Suspect]
     Active Substance: RUXOLITINIB
     Dosage: 15 MG, BID
     Route: 065
     Dates: start: 20170727

REACTIONS (11)
  - Heart rate increased [Unknown]
  - Hypertension [Unknown]
  - Cerebral disorder [Unknown]
  - Paraesthesia [Unknown]
  - Intentional product misuse [Unknown]
  - Feeling abnormal [Unknown]
  - Balance disorder [Unknown]
  - Thinking abnormal [Unknown]
  - Malaise [Unknown]
  - Gait disturbance [Unknown]
  - Dysstasia [Unknown]

NARRATIVE: CASE EVENT DATE: 20170730
